FAERS Safety Report 16854395 (Version 3)
Quarter: 2019Q4

REPORT INFORMATION
  Report Type: Report from Study
  Country: None (occurrence: US)
  Receive Date: 20190926
  Receipt Date: 20191224
  Transmission Date: 20200122
  Serious: Yes (Hospitalization, Other)
  Sender: FDA-Public Use
  Company Number: US-INSMED, INC.-US-INS-19-02987

PATIENT
  Age: 71 Year
  Sex: Female

DRUGS (2)
  1. ARIKAYCE [Suspect]
     Active Substance: AMIKACIN
     Indication: MYCOBACTERIUM AVIUM COMPLEX INFECTION
     Route: 055
     Dates: start: 20190903, end: 201909
  2. LAMIRA NEBULIZER SYSTEM [Suspect]
     Active Substance: DEVICE

REACTIONS (7)
  - Gait inability [Unknown]
  - Chest pain [Unknown]
  - Cough [Recovered/Resolved]
  - Limb discomfort [Unknown]
  - Muscular weakness [Recovered/Resolved]
  - Sputum increased [Unknown]
  - Aphonia [Unknown]

NARRATIVE: CASE EVENT DATE: 2019
